FAERS Safety Report 5097880-6 (Version None)
Quarter: 2006Q3

REPORT INFORMATION
  Report Type: 
  Country: None (occurrence: None)
  Receive Date: 20060905
  Receipt Date: 20060825
  Transmission Date: 20061208
  Serious: Yes (Life-Threatening, Hospitalization, Other)
  Sender: FDA-Public Use
  Company Number: HQWYE970525AUG06

PATIENT
  Age: 50 Year
  Sex: Male

DRUGS (3)
  1. INDERAL [Suspect]
     Dosage: 1600 MG DOSE ORAL
     Route: 048
  2. HYDROCHLORIC ACID (HYDROCHLORIC ACID) [Suspect]
     Dosage: 150 ML DOSE ORAL
     Route: 048
  3. OXAZEPAM [Suspect]
     Dosage: ORAL
     Route: 048

REACTIONS (7)
  - BRADYCARDIA [None]
  - CARDIAC ARREST [None]
  - ELECTROCARDIOGRAM QRS COMPLEX SHORTENED [None]
  - HYPOVOLAEMIA [None]
  - INTENTIONAL OVERDOSE [None]
  - METABOLIC ACIDOSIS [None]
  - SHOCK [None]
